FAERS Safety Report 17208657 (Version 5)
Quarter: 2020Q4

REPORT INFORMATION
  Report Type: Spontaneous
  Country: US (occurrence: US)
  Receive Date: 20191227
  Receipt Date: 20201026
  Transmission Date: 20210113
  Serious: Yes (Other)
  Sender: FDA-Public Use
  Company Number: US-PFIZER INC-2019557436

PATIENT
  Age: 73 Year
  Sex: Female
  Weight: 46.72 kg

DRUGS (2)
  1. LYRICA [Suspect]
     Active Substance: PREGABALIN
     Indication: RHEUMATOID ARTHRITIS
     Dosage: 50 MG, 3X/DAY (1 CAPSULE 50 MG BY MOUTH 3 (THREE) TIMES A DAY (TOTAL 150 MG))
     Route: 048
  2. LYRICA [Suspect]
     Active Substance: PREGABALIN
     Indication: FIBROMYALGIA

REACTIONS (4)
  - Mixed connective tissue disease [Not Recovered/Not Resolved]
  - Anxiety [Unknown]
  - Depression [Unknown]
  - Illness [Unknown]

NARRATIVE: CASE EVENT DATE: 2017
